FAERS Safety Report 14152033 (Version 1)
Quarter: 2017Q4

REPORT INFORMATION
  Report Type: Spontaneous
  Country: US (occurrence: None)
  Receive Date: 20171101
  Receipt Date: 20171101
  Transmission Date: 20180321
  Serious: No
  Sender: FDA-Public Use
  Company Number: None

PATIENT
  Age: 70 Year
  Sex: Female
  Weight: 76.66 kg

DRUGS (1)
  1. FORTEO [Suspect]
     Active Substance: TERIPARATIDE
     Indication: POLYMYALGIA RHEUMATICA
     Route: 058
     Dates: start: 20170814

REACTIONS (2)
  - Dizziness [None]
  - Nystagmus [None]

NARRATIVE: CASE EVENT DATE: 20170815
